FAERS Safety Report 11865734 (Version 2)
Quarter: 2016Q1

REPORT INFORMATION
  Report Type: Report from Study
  Country: US (occurrence: US)
  Receive Date: 20151223
  Receipt Date: 20160126
  Transmission Date: 20160526
  Serious: Yes (Death)
  Sender: FDA-Public Use
  Company Number: US-ASTELLAS-2015US048123

PATIENT
  Age: 78 Year
  Sex: Male

DRUGS (2)
  1. ERLOTINIB [Suspect]
     Active Substance: ERLOTINIB
     Indication: ADENOCARCINOMA
     Route: 048
     Dates: start: 20120321
  2. ERLOTINIB [Suspect]
     Active Substance: ERLOTINIB
     Indication: LUNG NEOPLASM MALIGNANT
     Route: 048

REACTIONS (5)
  - Weight increased [Unknown]
  - Cough [Unknown]
  - Death [Fatal]
  - Mass [Unknown]
  - Skin toxicity [Unknown]

NARRATIVE: CASE EVENT DATE: 20151219
